FAERS Safety Report 21999509 (Version 1)
Quarter: 2023Q1

REPORT INFORMATION
  Report Type: Spontaneous
  Country: US (occurrence: US)
  Receive Date: 20230216
  Receipt Date: 20230216
  Transmission Date: 20230417
  Serious: No
  Sender: FDA-Public Use
  Company Number: US-PFIZER INC-PV202300029445

PATIENT
  Age: 48 Year
  Sex: Male

DRUGS (1)
  1. EUCRISA [Suspect]
     Active Substance: CRISABOROLE
     Indication: Dermatitis atopic
     Dosage: UNK

REACTIONS (5)
  - Scar [Unknown]
  - Pruritus [Unknown]
  - Rash [Unknown]
  - Skin lesion [Unknown]
  - Dry skin [Unknown]
